FAERS Safety Report 12337123 (Version 1)
Quarter: 2016Q2

REPORT INFORMATION
  Report Type: Spontaneous
  Country: US (occurrence: None)
  Receive Date: 20160504
  Receipt Date: 20160504
  Transmission Date: 20160815
  Serious: Yes (Other)
  Sender: FDA-Public Use
  Company Number: None

PATIENT
  Age: 86 Year
  Sex: Female
  Weight: 47.63 kg

DRUGS (8)
  1. CALCIUM [Concomitant]
     Active Substance: CALCIUM
  2. MUPIROCIN 2% CREAM [Suspect]
     Active Substance: MUPIROCIN
  3. PROBIOTIC [Concomitant]
     Active Substance: PROBIOTICS NOS
  4. VIT. D [Concomitant]
  5. MULTIPLE VITAMIN [Concomitant]
     Active Substance: VITAMINS
  6. TRIAMCINOLONE 0.025% CREAM [Suspect]
     Active Substance: TRIAMCINOLONE ACETONIDE
     Indication: RASH
     Dates: start: 20160111, end: 20160118
  7. TRIAMCINOLONE 0.025% CREAM [Suspect]
     Active Substance: TRIAMCINOLONE ACETONIDE
     Indication: ECZEMA
     Dates: start: 20160111, end: 20160118
  8. HYDROCORTISONE 2.5% CREAM [Suspect]
     Active Substance: HYDROCORTISONE

REACTIONS (26)
  - Pruritus [None]
  - Hot flush [None]
  - Pain [None]
  - Ear pain [None]
  - Headache [None]
  - Insomnia [None]
  - Neuralgia [None]
  - Purulence [None]
  - Dyspepsia [None]
  - Skin discolouration [None]
  - Pyrexia [None]
  - Swelling face [None]
  - Weight decreased [None]
  - Depression [None]
  - Facial pain [None]
  - Burning sensation [None]
  - Overdose [None]
  - Decreased appetite [None]
  - Dyspnoea [None]
  - Pain in extremity [None]
  - Flatulence [None]
  - Heart rate increased [None]
  - Rash [None]
  - Ear swelling [None]
  - Local swelling [None]
  - Peripheral swelling [None]
